FAERS Safety Report 23692114 (Version 1)
Quarter: 2024Q1

REPORT INFORMATION
  Report Type: Spontaneous
  Country: US (occurrence: None)
  Receive Date: 20240329
  Receipt Date: 20240329
  Transmission Date: 20240410
  Serious: Yes (Hospitalization)
  Sender: FDA-Public Use
  Company Number: None

PATIENT
  Age: 61 Year
  Sex: Female

DRUGS (2)
  1. LORBRENA [Suspect]
     Active Substance: LORLATINIB
     Indication: Lung neoplasm malignant
     Dosage: 75MG DAILY ORAL
     Route: 048
     Dates: start: 202305
  2. AUGTYRO [Suspect]
     Active Substance: REPOTRECTINIB

REACTIONS (2)
  - Pneumonia [None]
  - Neuropathy peripheral [None]

NARRATIVE: CASE EVENT DATE: 20240303
